FAERS Safety Report 5027917-1 (Version None)
Quarter: 2006Q2

REPORT INFORMATION
  Report Type: 
  Country: None (occurrence: None)
  Receive Date: 20060616
  Receipt Date: 20060606
  Transmission Date: 20061013
  Serious: Yes (Death)
  Sender: FDA-Public Use
  Company Number: JP-MERCK-0606USA01573

PATIENT
  Age: 31 Year
  Sex: Male

DRUGS (3)
  1. PEPCID [Suspect]
     Route: 042
     Dates: start: 20040501, end: 20040601
  2. PEPCID [Suspect]
     Route: 048
     Dates: start: 20040601, end: 20040601
  3. [THERAPY UNSPECIFIED] [Suspect]
     Route: 065

REACTIONS (3)
  - DEATH [None]
  - OCULOMUCOCUTANEOUS SYNDROME [None]
  - STEVENS-JOHNSON SYNDROME [None]
